FAERS Safety Report 18479698 (Version 1)
Quarter: 2020Q4

REPORT INFORMATION
  Report Type: Spontaneous
  Country: DE (occurrence: DE)
  Receive Date: 20201109
  Receipt Date: 20201109
  Transmission Date: 20210114
  Serious: Yes (Life-Threatening, Hospitalization)
  Sender: FDA-Public Use
  Company Number: NVSC2020DE299044

PATIENT
  Age: 74 Year
  Sex: Female

DRUGS (5)
  1. BELOC [METOPROLOL TARTRATE] [Suspect]
     Active Substance: METOPROLOL TARTRATE
     Indication: PRODUCT USED FOR UNKNOWN INDICATION
     Dosage: 5 MG, QD (1-0-0-0)
     Route: 065
  2. CAPECITABINE. [Suspect]
     Active Substance: CAPECITABINE
     Indication: PRODUCT USED FOR UNKNOWN INDICATION
     Dosage: 500 MG (PAUSIERT)
     Route: 065
  3. PARACETAMOL [Suspect]
     Active Substance: ACETAMINOPHEN
     Indication: PRODUCT USED FOR UNKNOWN INDICATION
     Dosage: UNK(4X)
     Route: 065
  4. HYDROCHLOROTHIAZIDE,RAMIPRIL [Suspect]
     Active Substance: HYDROCHLOROTHIAZIDE\RAMIPRIL
     Indication: PRODUCT USED FOR UNKNOWN INDICATION
     Dosage: UNK UNK, QD (25|5 MG, 1-0-0-0)
     Route: 065
  5. CARMEN (LERCANIDIPINE HYDROCHLORIDE) [Suspect]
     Active Substance: LERCANIDIPINE HYDROCHLORIDE
     Indication: PRODUCT USED FOR UNKNOWN INDICATION
     Dosage: 20 MG, QD (1-0-0-0)
     Route: 065

REACTIONS (6)
  - Hepatic failure [Unknown]
  - Vertigo [Unknown]
  - Sepsis [Unknown]
  - Dizziness [Unknown]
  - Hypotension [Unknown]
  - Abdominal pain [Unknown]
